FAERS Safety Report 9063968 (Version 1)
Quarter: 2013Q1

REPORT INFORMATION
  Report Type: Report from Study
  Country: US (occurrence: US)
  Receive Date: 20130131
  Receipt Date: 20130131
  Transmission Date: 20140127
  Serious: No
  Sender: FDA-Public Use
  Company Number: US-ABBOTT-12P-163-1004809-00

PATIENT
  Age: 61 Year
  Sex: Female

DRUGS (13)
  1. HUMIRA [Suspect]
     Indication: CROHN^S DISEASE
     Route: 058
     Dates: start: 20121024, end: 20121024
  2. HUMIRA [Suspect]
     Dosage: START UP DOSE
     Route: 058
  3. BALSALAZIDE [Concomitant]
     Indication: CROHN^S DISEASE
  4. PREDNISONE [Concomitant]
     Indication: CROHN^S DISEASE
     Dosage: DAILY BE DECREASED TO 5MG ON 07 NOV 2012
  5. GLIPIZIDE [Concomitant]
     Indication: DIABETES MELLITUS
     Dosage: DAILY
  6. METFORMIN [Concomitant]
     Indication: DIABETES MELLITUS
  7. LIPITOR [Concomitant]
     Indication: BLOOD CHOLESTEROL
     Dosage: EVERY NIGHT
  8. TRICOR [Concomitant]
     Indication: BLOOD CHOLESTEROL
     Dosage: EVERY MORNING
  9. DIOVAN [Concomitant]
     Indication: BLOOD PRESSURE
     Dosage: DAILY
  10. PROTONIX [Concomitant]
     Indication: GASTROOESOPHAGEAL REFLUX DISEASE
     Dosage: DAILY
  11. WOMEN^S ULTRA CENTRIUM SILVER VITAMIN [Concomitant]
     Indication: PRODUCT USED FOR UNKNOWN INDICATION
     Dosage: 1 DAILY
  12. VITAMIN C [Concomitant]
     Indication: PRODUCT USED FOR UNKNOWN INDICATION
     Dosage: DAILY
  13. CALCIUM D [Concomitant]
     Indication: PRODUCT USED FOR UNKNOWN INDICATION
     Dosage: 1 DAILY

REACTIONS (1)
  - Oral neoplasm [Unknown]
